FAERS Safety Report 11176569 (Version 14)
Quarter: 2016Q3

REPORT INFORMATION
  Report Type: Spontaneous
  Country: JP (occurrence: JP)
  Receive Date: 20150610
  Receipt Date: 20160926
  Transmission Date: 20161109
  Serious: Yes (Other)
  Sender: FDA-Public Use
  Company Number: PHJP2015JP007024

PATIENT
  Sex: Male

DRUGS (35)
  1. TERNELIN TAB [Suspect]
     Active Substance: TIZANIDINE HYDROCHLORIDE
     Dosage: 3 MG, QD
     Route: 048
  2. MYONAL [Suspect]
     Active Substance: EPERISONE HYDROCHLORIDE
     Dosage: 50 MG, QD
     Route: 048
  3. DIOVAN [Suspect]
     Active Substance: VALSARTAN
     Indication: HYPERTENSION
     Dosage: 80 MG, QD
     Route: 048
  4. TERNELIN TAB [Suspect]
     Active Substance: TIZANIDINE HYDROCHLORIDE
     Indication: INSOMNIA
     Dosage: 3 MG, TID
     Route: 048
  5. TERNELIN TAB [Suspect]
     Active Substance: TIZANIDINE HYDROCHLORIDE
     Dosage: 1 MG, QD
     Route: 048
     Dates: start: 20150423
  6. TERNELIN TAB [Suspect]
     Active Substance: TIZANIDINE HYDROCHLORIDE
     Dosage: UNK
     Route: 048
     Dates: start: 20160426
  7. XYLOCAINE [Concomitant]
     Active Substance: LIDOCAINE HYDROCHLORIDE
     Indication: PRODUCT USED FOR UNKNOWN INDICATION
     Dosage: UNK
     Route: 058
     Dates: start: 201504
  8. TERNELIN TAB [Suspect]
     Active Substance: TIZANIDINE HYDROCHLORIDE
     Dosage: 1 MG, BID
     Route: 048
  9. TERNELIN TAB [Suspect]
     Active Substance: TIZANIDINE HYDROCHLORIDE
     Dosage: 1 MG, TID
     Route: 048
  10. SILECE [Concomitant]
     Active Substance: FLUNITRAZEPAM
     Indication: INSOMNIA
     Dosage: 2 MG, QD
     Route: 048
  11. TERNELIN TAB [Suspect]
     Active Substance: TIZANIDINE HYDROCHLORIDE
     Dosage: 4 MG, PRN
     Route: 048
  12. TERNELIN TAB [Suspect]
     Active Substance: TIZANIDINE HYDROCHLORIDE
     Dosage: 2 MG, TID
     Route: 048
  13. SILECE [Concomitant]
     Active Substance: FLUNITRAZEPAM
     Indication: MUSCULOSKELETAL STIFFNESS
  14. TERNELIN TAB [Suspect]
     Active Substance: TIZANIDINE HYDROCHLORIDE
     Dosage: 1 MG, TID
     Route: 048
     Dates: start: 20150511
  15. TERNELIN TAB [Suspect]
     Active Substance: TIZANIDINE HYDROCHLORIDE
     Dosage: 0.5 MG, QD
     Route: 048
  16. AMOBAN [Concomitant]
     Active Substance: ZOPICLONE
     Indication: INSOMNIA
     Dosage: 7.5 MG, QD
     Route: 048
  17. TERNELIN TAB [Suspect]
     Active Substance: TIZANIDINE HYDROCHLORIDE
     Indication: MUSCULOSKELETAL STIFFNESS
     Dosage: 2 MG, QD
     Route: 048
  18. TERNELIN TAB [Suspect]
     Active Substance: TIZANIDINE HYDROCHLORIDE
     Dosage: 1 MG, TID
     Route: 048
     Dates: start: 20150422
  19. TERNELIN TAB [Suspect]
     Active Substance: TIZANIDINE HYDROCHLORIDE
     Dosage: 1 MG, BID
     Route: 048
     Dates: start: 20150515
  20. TERNELIN TAB [Suspect]
     Active Substance: TIZANIDINE HYDROCHLORIDE
     Dosage: 2 MG, BID
     Route: 048
  21. TERNELIN TAB [Suspect]
     Active Substance: TIZANIDINE HYDROCHLORIDE
     Dosage: 1 MG, QD
     Route: 048
  22. TERNELIN TAB [Suspect]
     Active Substance: TIZANIDINE HYDROCHLORIDE
     Dosage: 2 MG, QD
     Route: 048
  23. TERNELIN TAB [Suspect]
     Active Substance: TIZANIDINE HYDROCHLORIDE
     Dosage: 6 MG, QD
     Route: 048
  24. TERNELIN TAB [Suspect]
     Active Substance: TIZANIDINE HYDROCHLORIDE
     Dosage: 3 MG, UNK
     Route: 048
     Dates: start: 20160425
  25. LEVOTOMIN [Concomitant]
     Active Substance: LEVOMEPROMAZINE
     Indication: INSOMNIA
     Dosage: 10 MG, QD
     Route: 048
  26. AMLODIN [Concomitant]
     Active Substance: AMLODIPINE BESYLATE
     Indication: BLOOD PRESSURE ABNORMAL
     Dosage: 10 MG, QD
     Route: 048
  27. RISPERDAL [Concomitant]
     Active Substance: RISPERIDONE
     Indication: PRODUCT USED FOR UNKNOWN INDICATION
     Dosage: UNK UNK, BID
     Route: 065
  28. MEILAX [Concomitant]
     Active Substance: ETHYL LOFLAZEPATE
     Indication: PRODUCT USED FOR UNKNOWN INDICATION
     Dosage: UNK
     Route: 065
  29. TERNELIN TAB [Suspect]
     Active Substance: TIZANIDINE HYDROCHLORIDE
     Dosage: 3 MG, QD
     Route: 048
  30. TERNELIN TAB [Suspect]
     Active Substance: TIZANIDINE HYDROCHLORIDE
     Dosage: 3 MG, TID
     Route: 048
  31. TERNELIN TAB [Suspect]
     Active Substance: TIZANIDINE HYDROCHLORIDE
     Dosage: UNK
     Route: 048
  32. TERNELIN TAB [Suspect]
     Active Substance: TIZANIDINE HYDROCHLORIDE
     Dosage: UNK
     Route: 048
  33. TERNELIN TAB [Suspect]
     Active Substance: TIZANIDINE HYDROCHLORIDE
     Dosage: 3 MG, UNK
     Route: 048
     Dates: start: 20160822
  34. MYONAL [Suspect]
     Active Substance: EPERISONE HYDROCHLORIDE
     Indication: PRODUCT USED FOR UNKNOWN INDICATION
     Dosage: UNK
     Route: 048
     Dates: start: 20150422
  35. LAMICTAL [Concomitant]
     Active Substance: LAMOTRIGINE
     Indication: PRODUCT USED FOR UNKNOWN INDICATION
     Dosage: UNK
     Route: 065

REACTIONS (21)
  - Headache [Recovering/Resolving]
  - Altered state of consciousness [Unknown]
  - Anxiety [Unknown]
  - Product use issue [Unknown]
  - Delirium [Unknown]
  - Feeling abnormal [Unknown]
  - Fall [Unknown]
  - Somnolence [Recovered/Resolved]
  - Musculoskeletal pain [Unknown]
  - Thirst [Unknown]
  - Contusion [Unknown]
  - Blood pressure increased [Unknown]
  - Overdose [Unknown]
  - Malaise [Unknown]
  - Insomnia [Unknown]
  - Ligament sprain [Unknown]
  - Musculoskeletal stiffness [Unknown]
  - Arthralgia [Unknown]
  - Blood pressure systolic decreased [Unknown]
  - Asthenia [Unknown]
  - Dizziness [Unknown]

NARRATIVE: CASE EVENT DATE: 20150422
